FAERS Safety Report 15622588 (Version 1)
Quarter: 2018Q4

REPORT INFORMATION
  Report Type: Spontaneous
  Country: ES (occurrence: ES)
  Receive Date: 20181115
  Receipt Date: 20181115
  Transmission Date: 20190205
  Serious: Yes (Hospitalization)
  Sender: FDA-Public Use
  Company Number: ES-TEVA-2018-ES-974964

PATIENT
  Age: 64 Year
  Sex: Female

DRUGS (6)
  1. LEVOFLOXACINO (2791A) [Suspect]
     Active Substance: LEVOFLOXACIN
     Indication: PNEUMONIA
     Dosage: 750 MILLIGRAM DAILY;
     Route: 048
     Dates: start: 20180629, end: 20180704
  2. CELEBREX [Concomitant]
     Active Substance: CELECOXIB
  3. ELOCOM [Concomitant]
     Active Substance: MOMETASONE FUROATE
  4. OMEPRAZOL (2141A) [Concomitant]
     Active Substance: OMEPRAZOLE
  5. CEFTRIAXONA (501A) [Suspect]
     Active Substance: CEFTRIAXONE
     Indication: PNEUMONIA
     Dosage: 1000 MILLIGRAM DAILY;
     Route: 065
     Dates: start: 20180629, end: 20180702
  6. PARACETAMOL (12A) [Concomitant]
     Active Substance: ACETAMINOPHEN

REACTIONS (2)
  - Oesophageal candidiasis [Recovered/Resolved]
  - Dysphagia [Recovered/Resolved]

NARRATIVE: CASE EVENT DATE: 20180712
